FAERS Safety Report 25082299 (Version 2)
Quarter: 2025Q2

REPORT INFORMATION
  Report Type: Report from Study
  Country: CA (occurrence: CA)
  Receive Date: 20250317
  Receipt Date: 20250407
  Transmission Date: 20250717
  Serious: Yes (Other)
  Sender: REGENERON
  Company Number: CA-BAYER-2025A034016

PATIENT
  Sex: Female

DRUGS (3)
  1. EYLEA [Suspect]
     Active Substance: AFLIBERCEPT
     Indication: Diabetic retinal oedema
     Route: 031
     Dates: start: 20250130, end: 20250130
  2. EYLEA [Suspect]
     Active Substance: AFLIBERCEPT
     Dates: start: 20250306
  3. AVASTIN [Concomitant]
     Active Substance: BEVACIZUMAB
     Indication: Product used for unknown indication

REACTIONS (3)
  - Retinal aneurysm [Unknown]
  - Visual impairment [Unknown]
  - Therapeutic response shortened [Not Recovered/Not Resolved]
